FAERS Safety Report 22222623 (Version 6)
Quarter: 2025Q1

REPORT INFORMATION
  Report Type: Spontaneous
  Country: US (occurrence: US)
  Receive Date: 20230418
  Receipt Date: 20250213
  Transmission Date: 20250409
  Serious: No
  Sender: PFIZER
  Company Number: US-PFIZER INC-PV202300065556

PATIENT
  Age: 14 Year
  Sex: Male
  Weight: 74.84 kg

DRUGS (2)
  1. GENOTROPIN [Suspect]
     Active Substance: SOMATROPIN
     Indication: Prader-Willi syndrome
     Dosage: ADMINISTERED IN THIGH, BUTT, STOMACH AND ARMS
  2. GENOTROPIN [Suspect]
     Active Substance: SOMATROPIN
     Dosage: 7 DAYS PER WEEK
     Route: 058

REACTIONS (6)
  - Product use issue [Unknown]
  - Product prescribing error [Unknown]
  - Device use issue [Unknown]
  - Device use error [Unknown]
  - Wrong device used [Unknown]
  - Device breakage [Unknown]
